FAERS Safety Report 7339243-6 (Version None)
Quarter: 2011Q1

REPORT INFORMATION
  Report Type: 
  Country: None (occurrence: None)
  Receive Date: 20110308
  Receipt Date: 20110302
  Transmission Date: 20110831
  Serious: Yes (Death)
  Sender: FDA-Public Use
  Company Number: US-ELI_LILLY_AND_COMPANY-US201010000836

PATIENT
  Sex: Male
  Weight: 67.347 kg

DRUGS (2)
  1. FORTEO [Suspect]
     Dosage: 20 UG, DAILY (1/D)
     Dates: end: 20101129
  2. FORTEO [Suspect]
     Indication: OSTEOPOROSIS
     Dosage: 20 UG, DAILY (1/D)
     Dates: start: 20100901

REACTIONS (9)
  - DECREASED APPETITE [None]
  - BLOOD CALCIUM INCREASED [None]
  - ABDOMINAL DISCOMFORT [None]
  - SOMNOLENCE [None]
  - INJECTION SITE HAEMORRHAGE [None]
  - WEIGHT DECREASED [None]
  - DEATH [None]
  - FEELING ABNORMAL [None]
  - ASTHENIA [None]
